FAERS Safety Report 11200324 (Version 1)
Quarter: 2015Q2

REPORT INFORMATION
  Report Type: Spontaneous
  Country: US (occurrence: None)
  Receive Date: 20150608
  Receipt Date: 20150608
  Transmission Date: 20150821
  Serious: No
  Sender: FDA-Public Use
  Company Number: 2015TUS002753

PATIENT
  Age: 67 Year
  Sex: Female
  Weight: 73.9 kg

DRUGS (2)
  1. OTHER UNKNOWN MEDICATION (ALL OTHER THERAPEUTIC PRODUCTS) [Concomitant]
  2. BRINTELLIX [Suspect]
     Active Substance: VORTIOXETINE HYDROBROMIDE
     Indication: DEPRESSION
     Route: 048
     Dates: start: 20150218

REACTIONS (4)
  - Scratch [None]
  - Confusional state [None]
  - Pruritus [None]
  - Pruritus generalised [None]

NARRATIVE: CASE EVENT DATE: 20150228
